FAERS Safety Report 8891074 (Version 1)
Quarter: 2012Q4

REPORT INFORMATION
  Report Type: 
  Country: PT (occurrence: PT)
  Receive Date: 20121107
  Receipt Date: 20121107
  Transmission Date: 20130627
  Serious: Yes (Congenital Anomaly)
  Sender: FDA-Public Use
  Company Number: PT-TEVA-367308ISR

PATIENT

DRUGS (1)
  1. COPAXONE [Suspect]

REACTIONS (1)
  - Pyloric stenosis [Unknown]
